FAERS Safety Report 15011804 (Version 3)
Quarter: 2018Q3

REPORT INFORMATION
  Report Type: Spontaneous
  Country: US (occurrence: US)
  Receive Date: 20180614
  Receipt Date: 20180912
  Transmission Date: 20181010
  Serious: Yes (Other)
  Sender: FDA-Public Use
  Company Number: US-BAYER-2018-112895

PATIENT
  Sex: Female

DRUGS (1)
  1. MIRENA [Suspect]
     Active Substance: LEVONORGESTREL
     Indication: CONTRACEPTION
     Dosage: 20 MCG/24HR, CONT
     Route: 015
     Dates: start: 201511

REACTIONS (6)
  - Abdominal pain lower [Not Recovered/Not Resolved]
  - Menstrual disorder [None]
  - Genital haemorrhage [None]
  - Menstruation irregular [Not Recovered/Not Resolved]
  - Amenorrhoea [None]
  - Dysmenorrhoea [None]

NARRATIVE: CASE EVENT DATE: 2018
